FAERS Safety Report 11947687 (Version 1)
Quarter: 2016Q1

REPORT INFORMATION
  Report Type: Spontaneous
  Country: GB (occurrence: GB)
  Receive Date: 20160125
  Receipt Date: 20160125
  Transmission Date: 20160526
  Serious: Yes (Other)
  Sender: FDA-Public Use
  Company Number: GB-PFIZER INC-2016032180

PATIENT
  Sex: Male

DRUGS (4)
  1. PREGABALIN. [Suspect]
     Active Substance: PREGABALIN
     Dosage: UNK
  2. PREGABALIN. [Suspect]
     Active Substance: PREGABALIN
     Dosage: 8
  3. PREGABALIN. [Suspect]
     Active Substance: PREGABALIN
     Dosage: 1 DF, DAILY
  4. PREGABALIN. [Suspect]
     Active Substance: PREGABALIN
     Dosage: 7

REACTIONS (3)
  - Drug abuse [Unknown]
  - Euphoric mood [Unknown]
  - Energy increased [Unknown]
